FAERS Safety Report 22619614 (Version 2)
Quarter: 2024Q4

REPORT INFORMATION
  Report Type: Spontaneous
  Country: US (occurrence: US)
  Receive Date: 20230620
  Receipt Date: 20241209
  Transmission Date: 20250115
  Serious: No
  Sender: SANOFI AVENTIS
  Company Number: US-SA-SAC20230619001647

PATIENT
  Age: 10 Year
  Sex: Female

DRUGS (2)
  1. ALDURAZYME [Suspect]
     Active Substance: LARONIDASE
     Indication: Mucopolysaccharidosis I
     Dosage: 26.1 MG, QW
     Route: 042
     Dates: start: 202005
  2. ALDURAZYME [Suspect]
     Active Substance: LARONIDASE
     Dosage: 20.3 MG(35ML), QW
     Route: 042
     Dates: start: 20200914

REACTIONS (1)
  - Weight increased [Unknown]
